FAERS Safety Report 7355971-0 (Version None)
Quarter: 2011Q1

REPORT INFORMATION
  Report Type: 
  Country: None (occurrence: None)
  Receive Date: 20110316
  Receipt Date: 20110214
  Transmission Date: 20110831
  Serious: No
  Sender: FDA-Public Use
  Company Number: US-ABBOTT-11P-163-0705100-00

PATIENT
  Sex: Male

DRUGS (4)
  1. TRILIPIX [Suspect]
     Indication: BLOOD CHOLESTEROL ABNORMAL
     Dates: start: 20110213
  2. ACEBUTOLOL [Concomitant]
     Indication: HYPERTENSION
     Dates: start: 19910101
  3. TRIAMTERENE [Concomitant]
     Indication: HYPERTENSION
     Dates: start: 19910101
  4. AMLODIPINE [Concomitant]
     Indication: HYPERTENSION
     Dates: start: 19910101

REACTIONS (1)
  - DYSPNOEA [None]
